FAERS Safety Report 7750568-2 (Version None)
Quarter: 2011Q3

REPORT INFORMATION
  Report Type: 
  Country: None (occurrence: None)
  Receive Date: 20110914
  Receipt Date: 20110907
  Transmission Date: 20111222
  Serious: Yes (Death)
  Sender: FDA-Public Use
  Company Number: US-MERCK-1108USA03044

PATIENT
  Age: 67 Year
  Sex: Male

DRUGS (2)
  1. CANCIDAS [Suspect]
     Indication: FUNGAL ENDOCARDITIS
     Route: 051
  2. AMBISOME [Suspect]
     Indication: FUNGAL ENDOCARDITIS
     Route: 065

REACTIONS (2)
  - DRUG INEFFECTIVE [None]
  - ENDOCARDITIS CANDIDA [None]
